FAERS Safety Report 7293057-4 (Version None)
Quarter: 2011Q1

REPORT INFORMATION
  Report Type: 
  Country: None (occurrence: None)
  Receive Date: 20110215
  Receipt Date: 20110201
  Transmission Date: 20110831
  Serious: Yes (Death, Hospitalization)
  Sender: FDA-Public Use
  Company Number: NL-ROCHE-745992

PATIENT
  Sex: Female

DRUGS (7)
  1. MORPHINE [Concomitant]
     Dosage: DRUG: MORPHINE (DRINK).
     Route: 042
  2. BEVACIZUMAB [Suspect]
     Dosage: LAST DOSE PRIOR TO SAE: 22 NOVEMBER 2010
     Route: 042
     Dates: start: 20090924
  3. PACLITAXEL [Suspect]
     Dosage: LAST DOSE PRIOR TO SAE: 16 DECEMBER 2010. TEMPORARILY DISCONTINUED.
     Route: 042
     Dates: start: 20091029
  4. PARACETAMOL [Concomitant]
  5. TRASTUZUMAB [Suspect]
     Dosage: LAST DOSE PRIOR TO SAE: 22 NOVEMBER 2010, LOADING DOSE: 500 MG
     Route: 042
     Dates: start: 20090903
  6. TRASTUZUMAB [Suspect]
     Dosage: DATE OF LAST DOSE PRIOR TO SAE: 16 DECEMBER 2010
     Route: 042
  7. HYDROCHLOROTHIAZIDE [Concomitant]

REACTIONS (7)
  - DIARRHOEA [None]
  - DYSPNOEA [None]
  - ENCEPHALOPATHY [None]
  - MALAISE [None]
  - PNEUMONIA [None]
  - ORAL PAIN [None]
  - CHEST PAIN [None]
